FAERS Safety Report 6761926-7 (Version None)
Quarter: 2010Q2

REPORT INFORMATION
  Report Type: 
  Country: None (occurrence: None)
  Receive Date: 20100609
  Receipt Date: 20100602
  Transmission Date: 20101027
  Serious: Yes (Hospitalization)
  Sender: FDA-Public Use
  Company Number: US-ASTRAZENECA-2010SE08083

PATIENT
  Age: 924 Month
  Sex: Female

DRUGS (3)
  1. ARIMIDEX [Suspect]
     Route: 048
  2. CRESTOR [Suspect]
     Route: 048
  3. ARICEPT [Concomitant]

REACTIONS (7)
  - ASTHMA [None]
  - BREAST MASS [None]
  - DIVERTICULITIS [None]
  - DRUG DOSE OMISSION [None]
  - HOSPITALISATION [None]
  - MUSCLE SPASMS [None]
  - VAGINAL HAEMORRHAGE [None]
